FAERS Safety Report 25441573 (Version 1)
Quarter: 2025Q2

REPORT INFORMATION
  Report Type: Spontaneous
  Country: NL (occurrence: NL)
  Receive Date: 20250616
  Receipt Date: 20250616
  Transmission Date: 20250717
  Serious: Yes (Other)
  Sender: ELI LILLY AND COMPANY
  Company Number: NL-ELI_LILLY_AND_COMPANY-NL202501013437

PATIENT

DRUGS (2)
  1. MOUNJARO [Suspect]
     Active Substance: TIRZEPATIDE
     Indication: Product used for unknown indication
     Dosage: 2.5 MG, WEEKLY (1/W)
     Route: 065
     Dates: start: 202505
  2. INSULIN BEEF [Concomitant]
     Active Substance: INSULIN BEEF
     Indication: Product used for unknown indication

REACTIONS (10)
  - Fall [Unknown]
  - Loss of consciousness [Unknown]
  - Taste disorder [Unknown]
  - Dizziness [Unknown]
  - Abdominal distension [Unknown]
  - Abdominal pain upper [Unknown]
  - Diarrhoea [Recovered/Resolved]
  - Drug ineffective [Unknown]
  - Product dose omission issue [Unknown]
  - Off label use [Unknown]

NARRATIVE: CASE EVENT DATE: 20250501
